FAERS Safety Report 23035298 (Version 1)
Quarter: 2023Q4

REPORT INFORMATION
  Report Type: Spontaneous
  Country: JP (occurrence: JP)
  Receive Date: 20231005
  Receipt Date: 20231005
  Transmission Date: 20240110
  Serious: Yes (Hospitalization)
  Sender: FDA-Public Use
  Company Number: JP-BEH-2023161885

PATIENT
  Age: 14 Year
  Sex: Female
  Weight: 25.2 kg

DRUGS (1)
  1. HIZENTRA [Suspect]
     Active Substance: HUMAN IMMUNOGLOBULIN G
     Indication: Hypoglobulinaemia
     Dosage: 2G/10ML, QW
     Route: 058

REACTIONS (2)
  - Salpingo-oophoritis [Recovered/Resolved]
  - Hereditary disorder [Unknown]

NARRATIVE: CASE EVENT DATE: 20230608
